FAERS Safety Report 9215464 (Version 1)
Quarter: 2013Q2

REPORT INFORMATION
  Report Type: Spontaneous
  Country: US (occurrence: US)
  Receive Date: 20130406
  Receipt Date: 20130406
  Transmission Date: 20140414
  Serious: Yes (Hospitalization)
  Sender: FDA-Public Use
  Company Number: US-ACCORD-017000

PATIENT
  Age: 28 Year
  Sex: Male

DRUGS (2)
  1. CLONAZEPAM [Suspect]
     Indication: PRODUCT USED FOR UNKNOWN INDICATION
     Dosage: 16 CLONAZEPAM PILLS, HABITUALLY TOOK 10 TO 20 MG DAILY
  2. CLONIDINE [Suspect]
     Indication: PRODUCT USED FOR UNKNOWN INDICATION
     Dosage: MULTIPLE CLONIDINE PILLS, HABITUALLY TOOK 0.9 MG CLONIDINE DAILY

REACTIONS (5)
  - Intentional overdose [Unknown]
  - Drug abuse [Unknown]
  - Suicidal ideation [Recovered/Resolved]
  - Sinus bradycardia [Unknown]
  - Respiratory acidosis [Unknown]
